FAERS Safety Report 16124404 (Version 4)
Quarter: 2020Q2

REPORT INFORMATION
  Report Type: Report from Study
  Country: US (occurrence: US)
  Receive Date: 20190327
  Receipt Date: 20200612
  Transmission Date: 20200713
  Serious: Yes (Other)
  Sender: FDA-Public Use
  Company Number: US-SA-2019SA083759

PATIENT

DRUGS (7)
  1. DUPILUMAB [Suspect]
     Active Substance: DUPILUMAB
     Indication: ASTHMA
     Dosage: 300 MG, QOW
     Route: 058
  2. ASPIRIN EC [Concomitant]
     Active Substance: ASPIRIN
  3. VITAMIN D3 [Concomitant]
     Active Substance: CHOLECALCIFEROL
  4. VENTOLIN [Concomitant]
     Active Substance: ALBUTEROL SULFATE
  5. DUPILUMAB [Suspect]
     Active Substance: DUPILUMAB
     Indication: IRON DEFICIENCY ANAEMIA
     Dosage: 600 MG, 1X
     Route: 058
     Dates: start: 20190317, end: 20190317
  6. INJECTAFER [Concomitant]
     Active Substance: FERRIC CARBOXYMALTOSE
  7. TYLENOL [Concomitant]
     Active Substance: ACETAMINOPHEN

REACTIONS (8)
  - Somnolence [Not Recovered/Not Resolved]
  - Drug ineffective [Unknown]
  - Transient ischaemic attack [Unknown]
  - Injection site pain [Recovered/Resolved]
  - Product use in unapproved indication [Unknown]
  - Product dose omission [Unknown]
  - Blindness transient [Unknown]
  - Limb operation [Unknown]

NARRATIVE: CASE EVENT DATE: 2019
